FAERS Safety Report 7593880-2 (Version None)
Quarter: 2011Q3

REPORT INFORMATION
  Report Type: 
  Country: None (occurrence: None)
  Receive Date: 20110706
  Receipt Date: 20110629
  Transmission Date: 20111222
  Serious: Yes (Other)
  Sender: FDA-Public Use
  Company Number: PHHY2011BR44898

PATIENT
  Age: 41 Year
  Sex: Male

DRUGS (1)
  1. FORMOTEROL FUMARATE [Suspect]
     Indication: ASTHMA
     Dosage: TWO CAPSULES MID DAY AND 2 CAPSULES AT MIDNIGHT, USES IT EVERY 12 HOURS

REACTIONS (4)
  - NASAL CONGESTION [None]
  - INFLUENZA [None]
  - RESPIRATORY TRACT INFECTION [None]
  - DYSPNOEA [None]
